FAERS Safety Report 12597457 (Version 1)
Quarter: 2016Q3

REPORT INFORMATION
  Report Type: Spontaneous
  Country: US (occurrence: US)
  Receive Date: 20160727
  Receipt Date: 20160727
  Transmission Date: 20161109
  Serious: No
  Sender: FDA-Public Use
  Company Number: US-PFIZER INC-2016327206

PATIENT
  Age: 46 Year
  Sex: Male
  Weight: 92.99 kg

DRUGS (1)
  1. NEURONTIN [Suspect]
     Active Substance: GABAPENTIN
     Indication: SCIATICA
     Dosage: UNK

REACTIONS (1)
  - Drug ineffective for unapproved indication [Unknown]
